FAERS Safety Report 5100094-4 (Version None)
Quarter: 2006Q3

REPORT INFORMATION
  Report Type: 
  Country: None (occurrence: None)
  Receive Date: 20060908
  Receipt Date: 20060821
  Transmission Date: 20061208
  Serious: Yes (Death)
  Sender: FDA-Public Use
  Company Number: CA-BOEHRINGER INGELHEIM GMBH, GERMANY-2006-CN-00436CN

PATIENT
  Sex: Female
  Weight: 82.6 kg

DRUGS (2)
  1. TIPRANAVIR + RITONAVIR CO-ADMIN [Suspect]
     Indication: HIV INFECTION
     Dosage: 1000MG TPV/ 200MG RTV
     Route: 048
     Dates: start: 20040706
  2. TENOFOVIR [Concomitant]
     Indication: HIV INFECTION
     Route: 048
     Dates: start: 20040706

REACTIONS (1)
  - DEATH [None]
